FAERS Safety Report 4731717-7 (Version None)
Quarter: 2005Q3

REPORT INFORMATION
  Report Type: 
  Country: None (occurrence: None)
  Receive Date: 20050725
  Receipt Date: 20040913
  Transmission Date: 20060218
  Serious: Yes (Disabling)
  Sender: FDA-Public Use
  Company Number: WAES 0306USA00812

PATIENT
  Age: 60 Year
  Sex: Male
  Weight: 97.977 kg

DRUGS (6)
  1. VIOXX [Suspect]
     Indication: ARTHRALGIA
     Dosage: 25 MG/DAILY/PO; SEE IMAGE
     Route: 048
     Dates: start: 19991004, end: 19991018
  2. VIOXX [Suspect]
     Indication: ARTHRALGIA
     Dosage: 25 MG/DAILY/PO; SEE IMAGE
     Route: 048
     Dates: end: 20010710
  3. VIOXX [Suspect]
     Indication: ARTHRALGIA
     Dosage: 25 MG/DAILY/PO; SEE IMAGE
     Route: 048
     Dates: start: 19991020
  4. VIOXX [Suspect]
     Indication: ARTHRALGIA
     Dosage: 25 MG/DAILY/PO; SEE IMAGE
     Route: 048
     Dates: start: 20010523
  5. NAPROSYN [Concomitant]
  6. TYLENOL (CAPLET) [Concomitant]

REACTIONS (15)
  - ADVERSE EVENT [None]
  - ARTHRALGIA [None]
  - ARTHROPATHY [None]
  - BRONCHITIS CHRONIC [None]
  - CHRONIC OBSTRUCTIVE PULMONARY DISEASE [None]
  - CYST [None]
  - DIARRHOEA [None]
  - DRUG INEFFECTIVE [None]
  - HAND DEFORMITY [None]
  - HEADACHE [None]
  - HYPERTENSION [None]
  - KERATOCONJUNCTIVITIS SICCA [None]
  - MYALGIA [None]
  - PARAESTHESIA [None]
  - TESTICULAR CYST [None]
